FAERS Safety Report 15832733 (Version 1)
Quarter: 2019Q1

REPORT INFORMATION
  Report Type: Spontaneous
  Country: US (occurrence: US)
  Receive Date: 20190116
  Receipt Date: 20190116
  Transmission Date: 20190417
  Serious: Yes (Disabling)
  Sender: FDA-Public Use
  Company Number: None

PATIENT
  Age: 52 Year
  Sex: Female
  Weight: 74.25 kg

DRUGS (5)
  1. XANAX [Concomitant]
     Active Substance: ALPRAZOLAM
  2. BENTYL [Concomitant]
     Active Substance: DICYCLOMINE HYDROCHLORIDE
  3. ZICAM COLD REMEDY NASAL SWABS (HOMEOPATHICS) [Suspect]
     Active Substance: HOMEOPATHICS\ZINC ACETATE\ZINC GLUCONATE
     Indication: NASOPHARYNGITIS
     Dosage: ?          QUANTITY:1 EACH;OTHER FREQUENCY:EVERY 3 HOURS;OTHER ROUTE:APPLIED INTO THE NOSTRILS?
     Dates: start: 20181015, end: 20181017
  4. WELLBUTRIN [Concomitant]
     Active Substance: BUPROPION HYDROCHLORIDE
  5. JUNEL FE 1/20 [Concomitant]
     Active Substance: ETHINYL ESTRADIOL\NORETHINDRONE ACETATE

REACTIONS (1)
  - Anosmia [None]

NARRATIVE: CASE EVENT DATE: 20181015
